FAERS Safety Report 24712972 (Version 1)
Quarter: 2024Q4

REPORT INFORMATION
  Report Type: Spontaneous
  Country: BR (occurrence: BR)
  Receive Date: 20241209
  Receipt Date: 20241209
  Transmission Date: 20250115
  Serious: Yes (Death)
  Sender: BAYER HEALTHCARE PHARMACEUTICALS INC.
  Company Number: BR-BAYER-2024A173384

PATIENT
  Age: 47 Year
  Sex: Female

DRUGS (1)
  1. STIVARGA [Suspect]
     Active Substance: REGORAFENIB MONOHYDRATE
     Indication: Gastrointestinal stromal tumour
     Dosage: 120 MG, QD
     Dates: start: 20221101

REACTIONS (4)
  - Metastases to liver [Fatal]
  - Acute hepatic failure [Fatal]
  - Gastrointestinal carcinoma [Fatal]
  - Incorrect dose administered [None]

NARRATIVE: CASE EVENT DATE: 20221101
